FAERS Safety Report 22235859 (Version 1)
Quarter: 2023Q2

REPORT INFORMATION
  Report Type: Spontaneous
  Country: US (occurrence: US)
  Receive Date: 20230420
  Receipt Date: 20230420
  Transmission Date: 20230722
  Serious: No
  Sender: FDA-Public Use
  Company Number: US-PFIZER INC-PV202300070604

PATIENT
  Age: 70 Year
  Sex: Female

DRUGS (1)
  1. NURTEC ODT [Suspect]
     Active Substance: RIMEGEPANT SULFATE
     Indication: Migraine
     Dosage: DISSOLVE ONE ORAL DISINTEGRATING TABLET IN MOUTH EVERY OTHER DAY
     Route: 048

REACTIONS (1)
  - Drug ineffective [Recovered/Resolved with Sequelae]
